FAERS Safety Report 9351036 (Version 1)
Quarter: 2013Q2

REPORT INFORMATION
  Report Type: Spontaneous
  Country: US (occurrence: US)
  Receive Date: 20130617
  Receipt Date: 20130617
  Transmission Date: 20140414
  Serious: Yes (Other)
  Sender: FDA-Public Use
  Company Number: US-JNJFOC-20130602793

PATIENT
  Sex: Male

DRUGS (6)
  1. KETOCONAZOLE [Suspect]
     Indication: PROSTATE CANCER METASTATIC
     Dosage: IN WEEK 1, 3 AND 5
     Route: 048
  2. DOXORUBICIN [Suspect]
     Indication: PROSTATE CANCER METASTATIC
     Dosage: IN WEEK 1, 3 AND 5, AS A 24H INFUSION
     Route: 042
  3. DOCETAXEL [Suspect]
     Indication: PROSTATE CANCER METASTATIC
     Dosage: WEEK 2, 4 AND 6
     Route: 042
  4. ESTRAMUSTINE [Suspect]
     Indication: PROSTATE CANCER METASTATIC
     Dosage: FOR 1 WEEK
     Route: 048
  5. LEUPROLIDE ACETATE [Suspect]
     Indication: ANTIANDROGEN THERAPY
     Route: 065
  6. BICALUTAMIDE [Suspect]
     Indication: ANTIANDROGEN THERAPY
     Route: 065

REACTIONS (2)
  - Hypoglycaemia [Recovered/Resolved]
  - Off label use [Unknown]
